FAERS Safety Report 13007337 (Version 1)
Quarter: 2016Q4

REPORT INFORMATION
  Report Type: Spontaneous
  Country: JP (occurrence: JP)
  Receive Date: 20161207
  Receipt Date: 20161207
  Transmission Date: 20170207
  Serious: Yes (Hospitalization)
  Sender: FDA-Public Use
  Company Number: JP-MYLANLABS-2016M1053195

PATIENT

DRUGS (3)
  1. ETOPOSIDE. [Suspect]
     Active Substance: ETOPOSIDE
     Indication: ENTEROPATHY-ASSOCIATED T-CELL LYMPHOMA
     Route: 065
  2. CARBOPLATIN. [Suspect]
     Active Substance: CARBOPLATIN
     Indication: ENTEROPATHY-ASSOCIATED T-CELL LYMPHOMA
     Route: 065
  3. IFOSFAMIDE. [Suspect]
     Active Substance: IFOSFAMIDE
     Indication: ENTEROPATHY-ASSOCIATED T-CELL LYMPHOMA
     Route: 065

REACTIONS (2)
  - Abdominal abscess [Unknown]
  - Septic shock [Unknown]
